FAERS Safety Report 6148423-7 (Version None)
Quarter: 2009Q2

REPORT INFORMATION
  Report Type: 
  Country: None (occurrence: None)
  Receive Date: 20090408
  Receipt Date: 20090331
  Transmission Date: 20091009
  Serious: Yes (Other)
  Sender: FDA-Public Use
  Company Number: CN-PFIZER INC-2009191970

PATIENT

DRUGS (3)
  1. CARDURA [Suspect]
     Indication: POLLAKIURIA
     Dosage: 4 MG, 1X/DAY
     Route: 048
     Dates: start: 20090302, end: 20090303
  2. CARDURA [Suspect]
     Indication: MICTURITION URGENCY
  3. YINHUA MIYANLING PIAN [Concomitant]
     Route: 048
     Dates: start: 20090302

REACTIONS (3)
  - FLATULENCE [None]
  - LARYNGEAL OBSTRUCTION [None]
  - SWELLING FACE [None]
